FAERS Safety Report 14132353 (Version 1)
Quarter: 2017Q4

REPORT INFORMATION
  Report Type: Spontaneous
  Country: CH (occurrence: CH)
  Receive Date: 20171027
  Receipt Date: 20171027
  Transmission Date: 20180321
  Serious: Yes (Life-Threatening, Hospitalization, Disabling, Other)
  Sender: FDA-Public Use
  Company Number: CH-VISTAPHARM, INC.-VER201710-000999

PATIENT
  Age: 3 Year
  Sex: Female

DRUGS (1)
  1. METHADONE [Suspect]
     Active Substance: METHADONE HYDROCHLORIDE
     Indication: PRODUCT USED FOR UNKNOWN INDICATION

REACTIONS (13)
  - Pneumonia aspiration [Recovering/Resolving]
  - Myocardial infarction [Recovering/Resolving]
  - Nervous system disorder [Recovered/Resolved with Sequelae]
  - Multiple organ dysfunction syndrome [Recovering/Resolving]
  - Brain oedema [Recovering/Resolving]
  - Hydrocephalus [Recovering/Resolving]
  - Cardiogenic shock [Recovering/Resolving]
  - Hepatic failure [Recovering/Resolving]
  - Pneumonia [Recovering/Resolving]
  - Accidental overdose [Recovering/Resolving]
  - Shock [Recovering/Resolving]
  - Diabetic hyperglycaemic coma [Unknown]
  - Acute pulmonary oedema [Recovering/Resolving]
